FAERS Safety Report 5381452-X (Version None)
Quarter: 2007Q3

REPORT INFORMATION
  Report Type: 
  Country: None (occurrence: None)
  Receive Date: 20070709
  Receipt Date: 20070702
  Transmission Date: 20080115
  Serious: Yes (Other)
  Sender: FDA-Public Use
  Company Number: GB-BRISTOL-MYERS SQUIBB COMPANY-13803846

PATIENT
  Age: 49 Year
  Sex: Female

DRUGS (9)
  1. ABATACEPT [Suspect]
     Indication: RHEUMATOID ARTHRITIS
     Route: 042
     Dates: start: 20040719, end: 20070521
  2. METHOTREXATE [Concomitant]
  3. PREDNISOLONE [Concomitant]
  4. FOLIC ACID [Concomitant]
  5. CODEINE PHOSPHATE AND ACETAMINOPHEN [Concomitant]
  6. ALENDRONIC ACID [Concomitant]
     Indication: OSTEOPOROSIS
  7. DOXAZOSIN MESYLATE [Concomitant]
  8. FERROUS SULFATE [Concomitant]
  9. LANSOPRAZOLE [Concomitant]

REACTIONS (2)
  - BREAST CANCER [None]
  - GASTRIC CANCER STAGE IV [None]
